FAERS Safety Report 7677690-3 (Version None)
Quarter: 2011Q3

REPORT INFORMATION
  Report Type: 
  Country: None (occurrence: None)
  Receive Date: 20110811
  Receipt Date: 20110801
  Transmission Date: 20111222
  Serious: Yes (Hospitalization, Other)
  Sender: FDA-Public Use
  Company Number: PHHY2011VN71691

PATIENT
  Sex: Male
  Weight: 52 kg

DRUGS (1)
  1. GLEEVEC [Suspect]
     Indication: GASTROINTESTINAL STROMAL TUMOUR
     Dosage: 400 MG, DAILY
     Route: 048
     Dates: start: 20110616, end: 20110720

REACTIONS (5)
  - PYREXIA [None]
  - C-REACTIVE PROTEIN INCREASED [None]
  - HYPOGLYCAEMIA [None]
  - HAEMOGLOBIN DECREASED [None]
  - WHITE BLOOD CELLS URINE POSITIVE [None]
